FAERS Safety Report 14597160 (Version 1)
Quarter: 2018Q1

REPORT INFORMATION
  Report Type: Spontaneous
  Country: US (occurrence: US)
  Receive Date: 20180305
  Receipt Date: 20180305
  Transmission Date: 20180509
  Serious: No
  Sender: FDA-Public Use
  Company Number: US-SHIRE-US201807792

PATIENT
  Age: 55 Year
  Sex: Female

DRUGS (7)
  1. NEOMYCIN. [Concomitant]
     Active Substance: NEOMYCIN
     Indication: CONJUNCTIVAL HAEMORRHAGE
  2. NEOMYCIN. [Concomitant]
     Active Substance: NEOMYCIN
     Indication: INSTILLATION SITE PAIN
  3. POLYMYXIN B. [Concomitant]
     Active Substance: POLYMYXIN B
     Indication: CONJUNCTIVAL HAEMORRHAGE
  4. POLYMYXIN B. [Concomitant]
     Active Substance: POLYMYXIN B
     Indication: INSTILLATION SITE PAIN
  5. DEXAMETHASONE. [Concomitant]
     Active Substance: DEXAMETHASONE
     Indication: CONJUNCTIVAL HAEMORRHAGE
  6. XIIDRA [Suspect]
     Active Substance: LIFITEGRAST
     Indication: DRY EYE
     Dosage: 1 GTT, 2X/DAY:BID
     Route: 047
  7. DEXAMETHASONE. [Concomitant]
     Active Substance: DEXAMETHASONE
     Indication: INSTILLATION SITE PAIN

REACTIONS (2)
  - Instillation site reaction [Unknown]
  - Eye disorder [Unknown]
